FAERS Safety Report 6576355-9 (Version None)
Quarter: 2010Q1

REPORT INFORMATION
  Report Type: 
  Country: None (occurrence: None)
  Receive Date: 20100210
  Receipt Date: 20091118
  Transmission Date: 20100710
  Serious: No
  Sender: FDA-Public Use
  Company Number: A0835233A

PATIENT
  Age: 68 Year
  Sex: Female
  Weight: 55 kg

DRUGS (4)
  1. OLUX E [Suspect]
     Route: 061
  2. HYDROCHLOROTHIAZIDE [Concomitant]
     Dosage: 12.5MG PER DAY
  3. PROTONIX [Concomitant]
     Dosage: 40MG PER DAY
  4. URSODIOL [Concomitant]
     Indication: CHOLECYSTECTOMY
     Dosage: 300MG THREE TIMES PER DAY

REACTIONS (3)
  - HAIR COLOUR CHANGES [None]
  - PRODUCT QUALITY ISSUE [None]
  - UNDERDOSE [None]
